FAERS Safety Report 8560748-4 (Version None)
Quarter: 2012Q3

REPORT INFORMATION
  Report Type: 
  Country: None (occurrence: None)
  Receive Date: 20120727
  Receipt Date: 20120727
  Transmission Date: 20120928
  Serious: Yes (Hospitalization)
  Sender: FDA-Public Use
  Company Number: None

PATIENT
  Age: 78 Year
  Sex: Female
  Weight: 76.9 kg

DRUGS (8)
  1. LASIX [Concomitant]
  2. COUMADIN [Concomitant]
  3. COZAAR [Concomitant]
  4. ASPIRIN [Concomitant]
  5. TIKOSYN [Suspect]
     Indication: ATRIAL FIBRILLATION
     Dosage: 500MCG Q12 PO  RECENT
     Route: 048
  6. SLOW-MAG [Concomitant]
  7. AMBIEN [Concomitant]
  8. LOPRESSOR [Concomitant]

REACTIONS (5)
  - CARDIAC ARREST [None]
  - VENTRICULAR TACHYCARDIA [None]
  - TORSADE DE POINTES [None]
  - OSTEOARTHRITIS [None]
  - ELECTROCARDIOGRAM QT PROLONGED [None]
